FAERS Safety Report 9436096 (Version 2)
Quarter: 2014Q2

REPORT INFORMATION
  Report Type: Spontaneous
  Country: IT (occurrence: IT)
  Receive Date: 20130801
  Receipt Date: 20140415
  Transmission Date: 20141212
  Serious: Yes (Hospitalization, Other)
  Sender: FDA-Public Use
  Company Number: IT-ROCHE-1254436

PATIENT
  Age: 71 Year
  Sex: Female

DRUGS (10)
  1. RIVOTRIL [Suspect]
     Indication: PARKINSON^S DISEASE
     Route: 048
     Dates: start: 20130527, end: 20130527
  2. METFORMIN HYDROCHLORIDE [Suspect]
     Indication: PRODUCT USED FOR UNKNOWN INDICATION
     Route: 048
  3. PRAVASTATIN SODIUM [Concomitant]
     Route: 048
  4. MIRAPEXIN [Concomitant]
     Route: 048
  5. ZOLOFT [Concomitant]
  6. SIRIO [Concomitant]
  7. LANSOX [Concomitant]
  8. AZILECT [Concomitant]
     Route: 048
  9. STALEVO [Concomitant]
     Route: 048
  10. EUTIROX [Concomitant]

REACTIONS (5)
  - Confabulation [Recovering/Resolving]
  - Disorientation [Recovering/Resolving]
  - Sopor [Recovering/Resolving]
  - Hyponatraemia [Recovering/Resolving]
  - Drug abuse [Unknown]
